FAERS Safety Report 8420278 (Version 2)
Quarter: 2012Q4

REPORT INFORMATION
  Report Type: Report from Study
  Country: GB (occurrence: GB)
  Receive Date: 20120222
  Receipt Date: 20121016
  Transmission Date: 20130627
  Serious: Yes (Hospitalization)
  Sender: FDA-Public Use
  Company Number: GB-ASTRAZENECA-2012SE09371

PATIENT
  Age: 25817 Day
  Sex: Male

DRUGS (3)
  1. VANDETANIB [Suspect]
     Indication: THYROID CANCER
     Route: 048
     Dates: start: 20120116, end: 20120210
  2. THYROXINE [Concomitant]
     Indication: THYROXINE THERAPY
     Route: 048
  3. LOPERAMIDE [Concomitant]
     Indication: DIARRHOEA
     Dosage: AS REQUIRED
     Route: 048
     Dates: start: 20120119

REACTIONS (1)
  - Pulmonary embolism [Recovered/Resolved with Sequelae]
